FAERS Safety Report 8554206 (Version 2)
Quarter: 2013Q1

REPORT INFORMATION
  Report Type: Spontaneous
  Country: US (occurrence: US)
  Receive Date: 20120509
  Receipt Date: 20130125
  Transmission Date: 20140127
  Serious: Yes (Hospitalization, Congenital Anomaly)
  Sender: FDA-Public Use
  Company Number: US-GLAXOSMITHKLINE-A0976827A

PATIENT
  Age: 0 Year
  Sex: Female
  Weight: 3.5 kg

DRUGS (1)
  1. PAXIL [Suspect]
     Indication: ANXIETY
     Dosage: 20MG PER DAY
     Route: 064

REACTIONS (9)
  - Spina bifida [Unknown]
  - Benign neoplasm of spinal cord [Unknown]
  - Meningomyelocele [Unknown]
  - Tethered cord syndrome [Unknown]
  - Haemangioma congenital [Unknown]
  - Neurogenic bladder [Unknown]
  - Genital labial adhesions [Unknown]
  - Congenital anomaly [Unknown]
  - Foetal exposure during pregnancy [Unknown]
